FAERS Safety Report 7669686-2 (Version None)
Quarter: 2011Q3

REPORT INFORMATION
  Report Type: 
  Country: None (occurrence: None)
  Receive Date: 20110808
  Receipt Date: 20080818
  Transmission Date: 20111222
  Serious: Yes (Other)
  Sender: FDA-Public Use
  Company Number: US-BAYER-200825909NA

PATIENT
  Age: 58 Year
  Sex: Female
  Weight: 63.864 kg

DRUGS (38)
  1. MAGNEVIST [Suspect]
     Indication: NUCLEAR MAGNETIC RESONANCE IMAGING BRAIN
     Dosage: 15 ML, ONCE
     Dates: start: 20020701, end: 20020701
  2. MAGNEVIST [Suspect]
     Dosage: 15 ML, ONCE
     Dates: start: 20051018, end: 20051018
  3. MULTIHANCE [Suspect]
     Indication: NUCLEAR MAGNETIC RESONANCE IMAGING
  4. WELLBUTRIN [Concomitant]
  5. MAGNEVIST [Suspect]
     Dosage: 14 ML, ONCE
     Dates: start: 20041005, end: 20041005
  6. MAGNEVIST [Suspect]
     Dosage: 20 ML, ONCE
     Dates: start: 20050728, end: 20050728
  7. MAGNEVIST [Suspect]
     Dosage: 14 ML, ONCE
     Dates: start: 20070615, end: 20070615
  8. EFFEXOR [Concomitant]
  9. ATORVASTATIN [Concomitant]
  10. MAGNEVIST [Suspect]
     Dosage: 14 ML, ONCE
     Dates: start: 20050428, end: 20050428
  11. OMNISCAN [Suspect]
     Indication: NUCLEAR MAGNETIC RESONANCE IMAGING
     Dosage: 11 ML, ONCE
     Dates: start: 20060120, end: 20060120
  12. OPTIMARK [Suspect]
     Indication: NUCLEAR MAGNETIC RESONANCE IMAGING
  13. XANAX [Concomitant]
  14. CRESTOR [Concomitant]
  15. VOLTAREN [Concomitant]
  16. MAGNEVIST [Suspect]
     Dosage: 14 ML, ONCE
     Dates: start: 20030215, end: 20030215
  17. MAGNEVIST [Suspect]
     Dosage: 20 ML, ONCE
     Dates: start: 20041011, end: 20041011
  18. PROHANCE [Suspect]
     Indication: NUCLEAR MAGNETIC RESONANCE IMAGING
  19. PREMARIN [Concomitant]
  20. SYNTHROID [Concomitant]
  21. LEXAPRO [Concomitant]
  22. LORTAB [Concomitant]
  23. MIRTAZAPINE [Concomitant]
  24. CALCIUM WITH VITAMIN D [Concomitant]
     Route: 048
  25. MAGNEVIST [Suspect]
     Dosage: 20 ML, ONCE
     Dates: start: 20040731, end: 20040731
  26. MAGNEVIST [Suspect]
     Dosage: 14 ML, ONCE
     Dates: start: 20051112, end: 20051112
  27. CLIMARA [Concomitant]
  28. AMBIEN [Concomitant]
  29. TRICOR [Concomitant]
  30. ZINC [Concomitant]
     Route: 048
  31. MAGNEVIST [Suspect]
     Dosage: 14 ML, ONCE
     Dates: start: 20040614, end: 20040614
  32. OMNISCAN [Suspect]
  33. REMERON [Concomitant]
  34. TRILAFON [Concomitant]
  35. MAGNEVIST [Suspect]
     Indication: NUCLEAR MAGNETIC RESONANCE IMAGING
     Dosage: 20 ML, ONCE
     Dates: start: 19970505, end: 19970505
  36. OMNISCAN [Suspect]
     Dosage: 11 ML, ONCE
     Dates: start: 20060701, end: 20060710
  37. LYRICA [Concomitant]
  38. TENORMIN [Concomitant]

REACTIONS (15)
  - NEPHROGENIC SYSTEMIC FIBROSIS [None]
  - FIBROSIS [None]
  - ANXIETY [None]
  - JOINT CONTRACTURE [None]
  - SKIN FIBROSIS [None]
  - MOBILITY DECREASED [None]
  - CONNECTIVE TISSUE DISORDER [None]
  - DEPRESSION [None]
  - INJURY [None]
  - PAIN [None]
  - GENERAL PHYSICAL HEALTH DETERIORATION [None]
  - SCAR [None]
  - EMOTIONAL DISTRESS [None]
  - ANHEDONIA [None]
  - MUSCLE CONTRACTURE [None]
